FAERS Safety Report 7198135-6 (Version None)
Quarter: 2010Q4

REPORT INFORMATION
  Report Type: 
  Country: None (occurrence: None)
  Receive Date: 20101227
  Receipt Date: 20101217
  Transmission Date: 20110411
  Serious: Yes (Hospitalization, Other)
  Sender: FDA-Public Use
  Company Number: US-NOVOPROD-320381

PATIENT
  Sex: Male
  Weight: 48.073 kg

DRUGS (4)
  1. NOVOLOG [Suspect]
     Indication: TYPE 2 DIABETES MELLITUS
     Dosage: 3 IU, QD
     Dates: start: 20080101
  2. NOVOLOG [Suspect]
     Dosage: 6 IU, QD
     Dates: start: 20101101, end: 20101101
  3. LANTUS [Concomitant]
     Indication: TYPE 2 DIABETES MELLITUS
  4. DIGOXIN [Concomitant]
     Indication: PRODUCT USED FOR UNKNOWN INDICATION
     Dosage: UNK

REACTIONS (3)
  - HEART RATE DECREASED [None]
  - HYPOGLYCAEMIA [None]
  - INCORRECT DOSE ADMINISTERED [None]
